FAERS Safety Report 4643873-X (Version None)
Quarter: 2005Q2

REPORT INFORMATION
  Report Type: 
  Country: None (occurrence: None)
  Receive Date: 20050425
  Receipt Date: 20050309
  Transmission Date: 20051028
  Serious: Yes (Other)
  Sender: FDA-Public Use
  Company Number: US-GLAXOSMITHKLINE-A0548996A

PATIENT
  Age: 43 Year
  Sex: Male

DRUGS (2)
  1. NYTOL QUICKCAPS CAPLETS [Suspect]
     Indication: OVERDOSE
     Route: 048
     Dates: start: 20050309
  2. ALCOHOL [Suspect]
     Indication: ALCOHOLISM
     Route: 048

REACTIONS (5)
  - ABASIA [None]
  - ASTHENIA [None]
  - DYSARTHRIA [None]
  - OVERDOSE [None]
  - URINARY INCONTINENCE [None]
